FAERS Safety Report 8872864 (Version 1)
Quarter: 2012Q4

REPORT INFORMATION
  Report Type: 
  Country: GB (occurrence: GB)
  Receive Date: 20121029
  Receipt Date: 20121029
  Transmission Date: 20130627
  Serious: Yes (Hospitalization, Other)
  Sender: FDA-Public Use
  Company Number: PHHY2012GB094935

PATIENT
  Age: 76 Year
  Sex: Female

DRUGS (7)
  1. MICONAZOLE [Suspect]
     Indication: ORAL CANDIDIASIS
     Dosage: 1 DF, QID Stopped a few days ago
     Route: 061
     Dates: start: 20120921
  2. WARFARIN [Suspect]
     Indication: ATRIAL FIBRILLATION
     Route: 048
     Dates: end: 20121005
  3. MIRTAZAPINE [Concomitant]
     Indication: DEPRESSION
     Dosage: 45 mg, QD At night, continuing
     Route: 048
  4. ADIZEM-XL [Concomitant]
     Indication: ATRIAL FIBRILLATION
     Dosage: 240 mg, QD Continuing
     Route: 048
  5. TELMISARTAN [Concomitant]
     Indication: HYPERTENSION
     Dosage: 40 mg, QD Continuing
     Route: 048
  6. BENDROFLUAZIDE [Concomitant]
     Indication: HYPERTENSION
     Dosage: 2.5 mg, QD Continuing
     Route: 048
  7. OLANZAPINE [Concomitant]
     Dosage: 5 mg, QD At night, continuing
     Route: 048
     Dates: start: 201204

REACTIONS (3)
  - International normalised ratio increased [Recovering/Resolving]
  - Haematemesis [Recovering/Resolving]
  - Mallory-Weiss syndrome [Unknown]
